FAERS Safety Report 4780877-0 (Version None)
Quarter: 2005Q3

REPORT INFORMATION
  Report Type: 
  Country: None (occurrence: None)
  Receive Date: 20050914
  Receipt Date: 20050308
  Transmission Date: 20060218
  Serious: Yes (Hospitalization)
  Sender: FDA-Public Use
  Company Number: 163-20785-05030203

PATIENT
  Age: 53 Year
  Sex: Male
  Weight: 77.5651 kg

DRUGS (11)
  1. THALOMID [Suspect]
     Indication: MULTIPLE MYELOMA
     Dosage: 50 MG, DAILY, ORAL
     Route: 048
     Dates: start: 20050215
  2. DOXIL [Suspect]
     Indication: MULTIPLE MYELOMA
     Dates: start: 20050215
  3. DEXAMETHASONE [Suspect]
     Indication: MULTIPLE MYELOMA
     Dates: start: 20050215
  4. ALBUTEROL INHALER (SALBUTAMOL) [Concomitant]
  5. SIMVASTATIN [Concomitant]
  6. LORATADINE [Concomitant]
  7. CITALOPRAM [Concomitant]
  8. FOLIC ACID [Concomitant]
  9. VITAMIN B6 [Concomitant]
  10. COUMADIN [Concomitant]
  11. DIVALPROEX (VALPROATE SEMISODIUM) [Concomitant]

REACTIONS (1)
  - CHEST PAIN [None]
